FAERS Safety Report 4364037-3 (Version None)
Quarter: 2004Q2

REPORT INFORMATION
  Report Type: 
  Country: None (occurrence: None)
  Receive Date: 20040520
  Receipt Date: 20040520
  Transmission Date: 20050107
  Serious: Yes (Other)
  Sender: FDA-Public Use
  Company Number: None

PATIENT
  Sex: Male
  Weight: 68.9467 kg

DRUGS (6)
  1. GLEEVEC [Suspect]
     Indication: COLON CANCER METASTATIC
     Dosage: 400 MG X4 /WEEKS ORAL
     Route: 048
     Dates: start: 20040113, end: 20040330
  2. PACLITAXEL [Suspect]
     Indication: COLON CANCER METASTATIC
     Dosage: 147.2 MG Q WK X3/MO IV
     Route: 042
     Dates: start: 20040115, end: 20040318
  3. AMBIEN [Concomitant]
  4. FLOMAX [Concomitant]
  5. COMPAZINE [Concomitant]
  6. COLACE [Concomitant]

REACTIONS (1)
  - BLOOD PHOSPHORUS DECREASED [None]
